FAERS Safety Report 16718989 (Version 1)
Quarter: 2019Q3

REPORT INFORMATION
  Report Type: Spontaneous
  Country: US (occurrence: US)
  Receive Date: 20190702
  Receipt Date: 20190702
  Transmission Date: 20191005
  Serious: Yes (Other)
  Sender: FDA-Public Use
  Company Number: None

PATIENT
  Age: 58 Year
  Sex: Female
  Weight: 68.04 kg

DRUGS (4)
  1. XOLAIR [Suspect]
     Active Substance: OMALIZUMAB
     Indication: ASTHMA
     Dosage: ?          QUANTITY:3 INJECTS EACH TIM;OTHER ROUTE:INJECTION?
     Dates: start: 20170801
  2. ASTHMA MEDS [Concomitant]
  3. BIPOLAR MEDS [Concomitant]
  4. TYLENOL [Concomitant]
     Active Substance: ACETAMINOPHEN

REACTIONS (2)
  - Neuralgia [None]
  - Ear pain [None]

NARRATIVE: CASE EVENT DATE: 20170801
